FAERS Safety Report 21555030 (Version 3)
Quarter: 2022Q4

REPORT INFORMATION
  Report Type: Spontaneous
  Country: CH (occurrence: DE)
  Receive Date: 20221104
  Receipt Date: 20221216
  Transmission Date: 20230113
  Serious: Yes (Death)
  Sender: FDA-Public Use
  Company Number: CH-OPKO PHARMACEUTICALS, LLC.-2022OPK00067

PATIENT
  Age: 68 Year
  Sex: Female
  Weight: 69 kg

DRUGS (8)
  1. RAYALDEE [Suspect]
     Active Substance: CALCIFEDIOL
     Indication: Chronic kidney disease
     Dosage: 30 MICROGRAM, QD
     Route: 048
     Dates: start: 20220909, end: 20220928
  2. RAYALDEE [Suspect]
     Active Substance: CALCIFEDIOL
     Indication: Hyperparathyroidism secondary
  3. NEBIVOLOL [Concomitant]
     Active Substance: NEBIVOLOL
     Indication: Essential hypertension
     Route: 048
  4. MELPERONE [Concomitant]
     Active Substance: MELPERONE
     Indication: Nervous system disorder
     Dosage: 25 UNK, QD
     Dates: start: 2018, end: 202209
  5. ALUMINUM CHLOROHYDRATE [Concomitant]
     Active Substance: ALUMINUM CHLOROHYDRATE
     Route: 048
  6. SOLOFAL [Concomitant]
     Indication: Colitis
  7. PANTOPRAZOLE SODIUM [Concomitant]
     Active Substance: PANTOPRAZOLE SODIUM
     Indication: Chronic gastritis
  8. ATORVASTATIN [Concomitant]
     Active Substance: ATORVASTATIN

REACTIONS (4)
  - Staphylococcal sepsis [Fatal]
  - Inflammation [Fatal]
  - Dialysis related complication [Fatal]
  - Respiratory failure [Fatal]

NARRATIVE: CASE EVENT DATE: 20220901
